FAERS Safety Report 7214169-7 (Version None)
Quarter: 2010Q4

REPORT INFORMATION
  Report Type: 
  Country: None (occurrence: None)
  Receive Date: 20101126
  Receipt Date: 20100924
  Transmission Date: 20110411
  Serious: No
  Sender: FDA-Public Use
  Company Number: 163-22393-10080127

PATIENT
  Age: 36 Year
  Sex: Female

DRUGS (6)
  1. ISTODAX [Suspect]
     Indication: MYCOSIS FUNGOIDES
     Dosage: 30 MG, Q 28 DAYS, INTRAVENOUS
     Route: 042
     Dates: start: 20100722
  2. K-CLOR (POTASSIUM) [Concomitant]
  3. ATIVAN [Concomitant]
  4. COMPAZINE [Concomitant]
  5. OMEPRAZOLE [Concomitant]
  6. BUPROPION SR (BUPROPION) [Concomitant]

REACTIONS (1)
  - VAGINAL HAEMORRHAGE [None]
